FAERS Safety Report 25594549 (Version 2)
Quarter: 2025Q3

REPORT INFORMATION
  Report Type: Spontaneous
  Country: US (occurrence: US)
  Receive Date: 20250723
  Receipt Date: 20250811
  Transmission Date: 20251020
  Serious: Yes (Other)
  Sender: APOTEX
  Company Number: US-APOTEX-2025AP010278

PATIENT
  Age: 78 Year
  Sex: Female

DRUGS (11)
  1. PONATINIB [Suspect]
     Active Substance: PONATINIB
     Indication: Acute lymphocytic leukaemia
     Dosage: 30 MILLIGRAM, QD
     Route: 065
     Dates: start: 202409, end: 202410
  2. ACYCLOVIR [Concomitant]
     Active Substance: ACYCLOVIR
     Indication: Acute lymphocytic leukaemia
     Dosage: 400 MILLIGRAM, QD
     Route: 065
  3. AMIODARONE [Concomitant]
     Active Substance: AMIODARONE
     Indication: Acute lymphocytic leukaemia
     Dosage: 200 MILLIGRAM, QD
     Route: 065
  4. CHOLECALCIFEROL [Concomitant]
     Active Substance: CHOLECALCIFEROL
     Indication: Acute lymphocytic leukaemia
     Dosage: 200 MICROGRAM, QD
     Route: 065
  5. DILTIAZEM [Concomitant]
     Active Substance: DILTIAZEM
     Indication: Acute lymphocytic leukaemia
     Dosage: 180 MILLIGRAM, QD
     Route: 065
  6. FAMOTIDINE [Concomitant]
     Active Substance: FAMOTIDINE
     Indication: Acute lymphocytic leukaemia
     Dosage: 20 MILLIGRAM, QD
     Route: 065
  7. FLUCONAZOLE [Concomitant]
     Active Substance: FLUCONAZOLE
     Indication: Acute lymphocytic leukaemia
     Dosage: 200 MILLIGRAM, QD
     Route: 065
  8. METHOCARBAMOL [Concomitant]
     Active Substance: METHOCARBAMOL
     Indication: Acute lymphocytic leukaemia
     Dosage: 750 MILLIGRAM, QD
     Route: 065
  9. TORSEMIDE [Concomitant]
     Active Substance: TORSEMIDE
     Indication: Acute lymphocytic leukaemia
     Dosage: 20 MILLIGRAM, QD
     Route: 065
  10. TRAMADOL [Concomitant]
     Active Substance: TRAMADOL
     Indication: Acute lymphocytic leukaemia
     Dosage: 50 MILLIGRAM, QD
     Route: 065
  11. RIVAROXABAN [Concomitant]
     Active Substance: RIVAROXABAN
     Indication: Acute lymphocytic leukaemia
     Dosage: 20 MILLIGRAM, QD
     Route: 065

REACTIONS (1)
  - Squamous cell carcinoma [Recovered/Resolved]
